FAERS Safety Report 24437574 (Version 1)
Quarter: 2024Q4

REPORT INFORMATION
  Report Type: Report from Study
  Country: US (occurrence: US)
  Receive Date: 20241015
  Receipt Date: 20241015
  Transmission Date: 20250115
  Serious: Yes (Death, Other)
  Sender: GILEAD
  Company Number: US-GILEAD-2024-0690888

PATIENT
  Age: 77 Year
  Sex: Female

DRUGS (1)
  1. AZTREONAM LYSINE [Suspect]
     Active Substance: AZTREONAM LYSINE
     Indication: Bronchiectasis
     Dosage: 75 MG, TID (FOR 28 DAYS AND 28 DAYS OFF)
     Route: 065
     Dates: start: 202407

REACTIONS (2)
  - Death [Fatal]
  - Off label use [Unknown]
